FAERS Safety Report 16873595 (Version 1)
Quarter: 2019Q4

REPORT INFORMATION
  Report Type: Report from Study
  Country: None (occurrence: US)
  Receive Date: 20191001
  Receipt Date: 20191001
  Transmission Date: 20200122
  Serious: Yes (Other)
  Sender: FDA-Public Use
  Company Number: US-ABBVIE-19K-163-2939320-00

PATIENT
  Age: 56 Year
  Sex: Female

DRUGS (1)
  1. SYNTHROID [Suspect]
     Active Substance: LEVOTHYROXINE SODIUM
     Indication: PRODUCT USED FOR UNKNOWN INDICATION
     Route: 048

REACTIONS (9)
  - Vertigo [Unknown]
  - Hypoaesthesia [Unknown]
  - Thyroidectomy [Unknown]
  - Paraesthesia [Unknown]
  - Weight increased [Unknown]
  - Fatigue [Unknown]
  - Dizziness [Unknown]
  - Dry mouth [Not Recovered/Not Resolved]
  - Myalgia [Unknown]

NARRATIVE: CASE EVENT DATE: 20161121
